FAERS Safety Report 9142626 (Version 2)
Quarter: 2013Q2

REPORT INFORMATION
  Report Type: Spontaneous
  Country: BR (occurrence: BR)
  Receive Date: 20130306
  Receipt Date: 20130408
  Transmission Date: 20140414
  Serious: Yes (Other)
  Sender: FDA-Public Use
  Company Number: PHHY2013BR020618

PATIENT
  Sex: Male
  Weight: 2 kg

DRUGS (3)
  1. FORASEQ [Suspect]
     Dosage: UNK (MATERNAL DOSE: 2 DF, (1 CAPSULE OF THE TREATMENT 2 IN THE MORNING AND 1 CAPSULE OF THE TREATMEN
     Route: 064
  2. MIFLONIDE [Concomitant]
     Dosage: UNK UKN, UNK
  3. TYLENOL [Concomitant]
     Dosage: UNK UKN, UNK
     Route: 064

REACTIONS (4)
  - Kidney malformation [Not Recovered/Not Resolved]
  - Weight decrease neonatal [Recovering/Resolving]
  - Feeding disorder [Recovered/Resolved]
  - Foetal exposure during pregnancy [Unknown]
